FAERS Safety Report 10635217 (Version 1)
Quarter: 2014Q4

REPORT INFORMATION
  Report Type: Spontaneous
  Country: CH (occurrence: CH)
  Receive Date: 20141205
  Receipt Date: 20141205
  Transmission Date: 20150529
  Serious: Yes (Hospitalization)
  Sender: FDA-Public Use
  Company Number: CH-ASTRAZENECA-2014SE91616

PATIENT
  Age: 78 Year
  Sex: Male

DRUGS (14)
  1. KEPPRA [Interacting]
     Active Substance: LEVETIRACETAM
     Indication: GENERALISED TONIC-CLONIC SEIZURE
     Route: 048
     Dates: start: 2014
  2. ACIDUM FOLICUM [Concomitant]
     Active Substance: FOLIC ACID
  3. ROCEPHIN [Concomitant]
     Active Substance: CEFTRIAXONE SODIUM
  4. NORVASC [Concomitant]
     Active Substance: AMLODIPINE BESYLATE
  5. GLUCOSE [Concomitant]
     Active Substance: DEXTROSE
  6. TIMONIL [Interacting]
     Active Substance: CARBAMAZEPINE
     Indication: GENERALISED TONIC-CLONIC SEIZURE
     Route: 048
     Dates: start: 2014
  7. PENICILLIN [Concomitant]
     Active Substance: PENICILLIN
  8. BELOC-ZOK [Concomitant]
     Active Substance: METOPROLOL SUCCINATE
  9. ESOMEP [Concomitant]
     Active Substance: ESOMEPRAZOLE
  10. FRAGMIN E [Concomitant]
  11. CIPRALEX [Concomitant]
     Active Substance: ESCITALOPRAM OXALATE
  12. TOREM [Concomitant]
     Active Substance: TORSEMIDE
  13. SEROQUEL [Suspect]
     Active Substance: QUETIAPINE FUMARATE
     Indication: BIPOLAR DISORDER
     Route: 048
     Dates: start: 20121230
  14. RIVOTRIL [Interacting]
     Active Substance: CLONAZEPAM
     Indication: EPILEPSY
     Route: 041
     Dates: start: 20140811, end: 20140811

REACTIONS (4)
  - Apnoea [Recovered/Resolved]
  - Status epilepticus [None]
  - Drug interaction [Recovered/Resolved]
  - Myoclonus [None]

NARRATIVE: CASE EVENT DATE: 20140811
